FAERS Safety Report 10720999 (Version 1)
Quarter: 2015Q1

REPORT INFORMATION
  Report Type: Spontaneous
  Country: US (occurrence: US)
  Receive Date: 20150119
  Receipt Date: 20150119
  Transmission Date: 20150721
  Serious: Yes (Hospitalization, Other)
  Sender: FDA-Public Use
  Company Number: US-SA-2015SA004336

PATIENT
  Age: 64 Year
  Sex: Male

DRUGS (7)
  1. PLAVIX [Suspect]
     Active Substance: CLOPIDOGREL BISULFATE
     Route: 065
  2. VITAMIN D [Concomitant]
     Active Substance: CHOLECALCIFEROL
     Dosage: DOSE:50000 UNIT(S)
  3. LIVALO [Concomitant]
     Active Substance: PITAVASTATIN CALCIUM
  4. METOPROLOL [Concomitant]
     Active Substance: METOPROLOL
  5. PLAVIX [Suspect]
     Active Substance: CLOPIDOGREL BISULFATE
     Route: 065
  6. ASPIRIN. [Concomitant]
     Active Substance: ASPIRIN
  7. FUROSEMIDE. [Concomitant]
     Active Substance: FUROSEMIDE

REACTIONS (21)
  - Wheelchair user [Unknown]
  - Ocular discomfort [Unknown]
  - Back pain [Unknown]
  - Aortic valve incompetence [Unknown]
  - Muscle spasms [Unknown]
  - Joint injury [Unknown]
  - Chest pain [Unknown]
  - Aphonia [Unknown]
  - Peripheral swelling [Unknown]
  - Blood glucose decreased [Unknown]
  - Neck surgery [Unknown]
  - Cerebrovascular accident [Unknown]
  - Injury [Unknown]
  - Blood glucose increased [Unknown]
  - Paralysis [Unknown]
  - Arterial occlusive disease [Unknown]
  - Fall [Unknown]
  - Ear pain [Unknown]
  - Arthropathy [Unknown]
  - Weight decreased [Unknown]
  - Body height decreased [Unknown]

NARRATIVE: CASE EVENT DATE: 2007
